FAERS Safety Report 7293325-6 (Version None)
Quarter: 2011Q1

REPORT INFORMATION
  Report Type: 
  Country: None (occurrence: None)
  Receive Date: 20110215
  Receipt Date: 20110204
  Transmission Date: 20110831
  Serious: Yes (Hospitalization)
  Sender: FDA-Public Use
  Company Number: US-NOVOPROD-322932

PATIENT
  Sex: Male
  Weight: 90.249 kg

DRUGS (9)
  1. ASPIRIN [Concomitant]
     Indication: PRODUCT USED FOR UNKNOWN INDICATION
     Dosage: 325 MG, QD
     Route: 048
  2. ZYLOPRIM [Concomitant]
     Indication: GOUT
     Dosage: 100 MG, BID
     Route: 048
  3. LISINOPRIL [Concomitant]
     Indication: HYPERTENSION
     Dosage: 40 MG, QD
     Route: 048
  4. SERZONE [Concomitant]
     Indication: DEPRESSION
     Dosage: 100 MG, QD
     Route: 048
  5. MULTIVITAMIN                       /00097801/ [Concomitant]
     Indication: VITAMIN SUPPLEMENTATION
     Dosage: UNK
     Route: 048
  6. OMEGA 3                            /01334101/ [Concomitant]
     Indication: SUPPLEMENTATION THERAPY
     Dosage: UNK
     Route: 048
  7. HYDROCHLOROTHIAZIDE [Concomitant]
     Indication: HYPERTENSION
     Dosage: 25 MG, QD
     Route: 048
  8. CELEBREX [Concomitant]
     Indication: ARTHRITIS
     Dosage: 200 MG, QD
     Route: 048
  9. VICTOZA [Suspect]
     Indication: TYPE 2 DIABETES MELLITUS
     Dosage: 1.2 MG, QD
     Route: 058
     Dates: start: 20100101, end: 20110129

REACTIONS (2)
  - PANCREATITIS [None]
  - WEIGHT INCREASED [None]
